FAERS Safety Report 16267861 (Version 1)
Quarter: 2019Q2

REPORT INFORMATION
  Report Type: Spontaneous
  Country: FR (occurrence: FR)
  Receive Date: 20190503
  Receipt Date: 20190503
  Transmission Date: 20190711
  Serious: Yes (Hospitalization)
  Sender: FDA-Public Use
  Company Number: FR-TEVA-2019-FR-1044341

PATIENT
  Age: 24 Year
  Sex: Female

DRUGS (2)
  1. RULID 150 MG, COMPRIM? ENROB? [Concomitant]
     Active Substance: ROXITHROMYCIN
     Indication: BRONCHITIS
     Route: 048
     Dates: start: 20181011
  2. AMOXICILLINE [Suspect]
     Active Substance: AMOXICILLIN
     Indication: BRONCHITIS
     Route: 048
     Dates: end: 20181011

REACTIONS (1)
  - Angioedema [Recovered/Resolved]

NARRATIVE: CASE EVENT DATE: 20181010
